FAERS Safety Report 8905787 (Version 2)
Quarter: 2012Q4

REPORT INFORMATION
  Report Type: 
  Country: US (occurrence: US)
  Receive Date: 20121113
  Receipt Date: 20121127
  Transmission Date: 20130627
  Serious: Yes (Other)
  Sender: FDA-Public Use
  Company Number: US-PFIZER INC-2012279933

PATIENT
  Age: 59 Year
  Sex: Female
  Weight: 109 kg

DRUGS (5)
  1. NEURONTIN [Suspect]
     Indication: FIBROMYALGIA
     Dosage: UNK, 3X/day
     Dates: start: 2011, end: 2012
  2. NEURONTIN [Suspect]
     Indication: NERVE PAIN
  3. NEURONTIN [Suspect]
     Indication: ARTHRITIS
  4. LYRICA [Suspect]
     Indication: FIBROMYALGIA
     Dosage: 75 mg, 2x/day
     Route: 048
     Dates: start: 2012
  5. ATENOLOL [Concomitant]
     Indication: BLOOD PRESSURE HIGH
     Dosage: 50 mg, 2x/day

REACTIONS (3)
  - Akinesia [Unknown]
  - Eye disorder [Unknown]
  - Pain in extremity [Unknown]
